FAERS Safety Report 25545168 (Version 1)
Quarter: 2025Q3

REPORT INFORMATION
  Report Type: Report from Study
  Country: US (occurrence: US)
  Receive Date: 20250711
  Receipt Date: 20250711
  Transmission Date: 20251020
  Serious: Yes (Hospitalization, Other)
  Sender: ABBVIE
  Company Number: US-ABBVIE-6350406

PATIENT
  Age: 67 Year
  Sex: Female
  Weight: 54.431 kg

DRUGS (13)
  1. HUMIRA [Suspect]
     Active Substance: ADALIMUMAB
     Indication: Rheumatoid arthritis
     Route: 058
     Dates: start: 2012
  2. HUMIRA [Suspect]
     Active Substance: ADALIMUMAB
     Route: 058
     Dates: start: 20220301
  3. XANAX [Concomitant]
     Active Substance: ALPRAZOLAM
     Indication: Anxiety
  4. METOPROLOL TARTRATE [Concomitant]
     Active Substance: METOPROLOL TARTRATE
     Indication: Hypertension
     Dosage: 1/2 TABLET
  5. ALBUTEROL [Concomitant]
     Active Substance: ALBUTEROL
     Indication: Asthma
  6. TYLENOL WITH CODEINE [Concomitant]
     Active Substance: ACETAMINOPHEN\CODEINE PHOSPHATE
     Indication: Back pain
  7. BUTALBITAL [Concomitant]
     Active Substance: BUTALBITAL
     Indication: Headache
  8. FOLIC ACID [Concomitant]
     Active Substance: FOLIC ACID
     Indication: Vitamin supplementation
     Dosage: FORM STRENGTH: 1 MILLIGRAM
  9. METHOTREXATE [Concomitant]
     Active Substance: METHOTREXATE
     Indication: Rheumatoid arthritis
     Dosage: 6 TABLET?FORM STRENGTH: 2.5 MILLIGRAM
     Route: 048
  10. TIZANIDINE [Concomitant]
     Active Substance: TIZANIDINE
     Indication: Muscle spasms
  11. ALEVE [Concomitant]
     Active Substance: NAPROXEN SODIUM
     Indication: Pain
  12. SENNA [Concomitant]
     Active Substance: SENNOSIDES
     Indication: Constipation
  13. MORPHINE [Concomitant]
     Active Substance: MORPHINE
     Indication: Procedural pain

REACTIONS (13)
  - Intervertebral disc degeneration [Recovering/Resolving]
  - Ankle fracture [Recovered/Resolved]
  - Spinal operation [Unknown]
  - Procedural pain [Recovering/Resolving]
  - Back pain [Recovering/Resolving]
  - Arthropathy [Not Recovered/Not Resolved]
  - Rheumatoid arthritis [Unknown]
  - Hypoaesthesia [Recovered/Resolved]
  - Pain [Recovering/Resolving]
  - Osteoarthritis [Recovered/Resolved]
  - Finger deformity [Not Recovered/Not Resolved]
  - Pneumonia [Recovered/Resolved]
  - Arthralgia [Not Recovered/Not Resolved]

NARRATIVE: CASE EVENT DATE: 20160101
